FAERS Safety Report 7350008-1 (Version None)
Quarter: 2011Q1

REPORT INFORMATION
  Report Type: 
  Country: None (occurrence: None)
  Receive Date: 20110314
  Receipt Date: 20110303
  Transmission Date: 20110831
  Serious: Yes (Hospitalization, Other)
  Sender: FDA-Public Use
  Company Number: JP-BRISTOL-MYERS SQUIBB COMPANY-15583859

PATIENT
  Sex: Female

DRUGS (1)
  1. ABILIFY [Suspect]
     Indication: SCHIZOPHRENIA
     Dosage: INITAL DOSE: 24MG/DAY, INCREASED DOSE 30MG/D, PLANNED TO REDUCE BACK TO 24MG/D.
     Route: 048

REACTIONS (2)
  - CONVULSION [None]
  - ALTERED STATE OF CONSCIOUSNESS [None]
